FAERS Safety Report 4900081-2 (Version None)
Quarter: 2006Q1

REPORT INFORMATION
  Report Type: 
  Country: None (occurrence: None)
  Receive Date: 20060203
  Receipt Date: 20051130
  Transmission Date: 20060701
  Serious: Yes (Hospitalization)
  Sender: FDA-Public Use
  Company Number: PHHO2005JP18865

PATIENT
  Age: 90 Year
  Sex: Female

DRUGS (6)
  1. DIOVAN [Suspect]
     Indication: HYPERTENSION
     Dosage: 80 MG, QD
     Dates: start: 20030911
  2. FUROSEMIDE [Concomitant]
     Indication: CARDIAC FAILURE
  3. ASPARA K [Concomitant]
     Indication: HYPOKALAEMIA
  4. ARICEPT [Concomitant]
     Indication: DEMENTIA
  5. AZUCURENIN S [Concomitant]
     Indication: PROPHYLAXIS AGAINST GASTROINTESTINAL ULCER
  6. ALOSENN [Concomitant]
     Indication: CONSTIPATION

REACTIONS (2)
  - CLAVICLE FRACTURE [None]
  - FALL [None]
